FAERS Safety Report 6992193-7 (Version None)
Quarter: 2010Q3

REPORT INFORMATION
  Report Type: 
  Country: None (occurrence: None)
  Receive Date: 20100917
  Receipt Date: 20100908
  Transmission Date: 20110219
  Serious: Yes (Other)
  Sender: FDA-Public Use
  Company Number: US-ALLERGAN-1011205US

PATIENT
  Age: 57 Year
  Sex: Female

DRUGS (3)
  1. REFRESH P.M. [Suspect]
     Indication: DRY EYE
     Dosage: 1 UNK, QHS
     Route: 047
     Dates: start: 20040101, end: 20100628
  2. REFRESH P.M. [Suspect]
     Indication: CORNEAL EROSION
  3. REFRESH                            /00007001/ [Concomitant]
     Indication: DRY EYE
     Route: 047

REACTIONS (7)
  - ASTHENOPIA [None]
  - CORNEAL EROSION [None]
  - EYE DISCHARGE [None]
  - EYELID OEDEMA [None]
  - EYELID PTOSIS [None]
  - HORDEOLUM [None]
  - VISUAL ACUITY REDUCED [None]
